FAERS Safety Report 9654360 (Version 3)
Quarter: 2013Q4

REPORT INFORMATION
  Report Type: Spontaneous
  Country: TH (occurrence: TH)
  Receive Date: 20131029
  Receipt Date: 20131205
  Transmission Date: 20140711
  Serious: Yes (Death)
  Sender: FDA-Public Use
  Company Number: TH-ROCHE-1296135

PATIENT
  Age: 46 Year
  Sex: Male
  Weight: 64.8 kg

DRUGS (5)
  1. INVIRASE [Suspect]
     Indication: HIV INFECTION
     Route: 048
     Dates: start: 20060530, end: 20070714
  2. DIGITALIS [Suspect]
     Indication: PRODUCT USED FOR UNKNOWN INDICATION
     Route: 065
  3. RITONAVIR [Concomitant]
     Indication: HIV INFECTION
     Route: 048
     Dates: start: 19990810, end: 20070714
  4. ZIDOVUDINE [Concomitant]
     Indication: HIV INFECTION
     Route: 048
     Dates: start: 19990810, end: 20070714
  5. LAMIVUDINE [Concomitant]
     Indication: HIV INFECTION
     Route: 048
     Dates: start: 19990810, end: 20070714

REACTIONS (3)
  - Hypertension [Fatal]
  - Cardiomyopathy [Fatal]
  - Toxicity to various agents [Fatal]
